FAERS Safety Report 12191816 (Version 1)
Quarter: 2016Q1

REPORT INFORMATION
  Report Type: Spontaneous
  Country: US (occurrence: US)
  Receive Date: 20160318
  Receipt Date: 20160318
  Transmission Date: 20160526
  Serious: No
  Sender: FDA-Public Use
  Company Number: US-ENDO PHARMACEUTICALS INC.-2015-003024

PATIENT
  Age: 56 Year
  Sex: Female
  Weight: 49.03 kg

DRUGS (1)
  1. HYDROCORTISONE CREAM .025 [Suspect]
     Active Substance: HYDROCORTISONE
     Indication: RASH PRURITIC
     Route: 061

REACTIONS (1)
  - Drug ineffective [Not Recovered/Not Resolved]
